FAERS Safety Report 13294859 (Version 2)
Quarter: 2018Q1

REPORT INFORMATION
  Report Type: Spontaneous
  Country: US (occurrence: US)
  Receive Date: 20170303
  Receipt Date: 20180117
  Transmission Date: 20180508
  Serious: Yes (Hospitalization, Other)
  Sender: FDA-Public Use
  Company Number: US-JNJFOC-20170213188

PATIENT
  Age: 57 Year
  Sex: Female

DRUGS (5)
  1. SOMA [Concomitant]
     Active Substance: CARISOPRODOL
     Indication: PRODUCT USED FOR UNKNOWN INDICATION
     Route: 065
     Dates: start: 1998
  2. XARELTO [Suspect]
     Active Substance: RIVAROXABAN
     Indication: FEMUR FRACTURE
     Route: 048
     Dates: start: 20150825, end: 20150902
  3. XARELTO [Suspect]
     Active Substance: RIVAROXABAN
     Indication: FEMUR FRACTURE
     Route: 048
     Dates: end: 201510
  4. OXYCODONE [Concomitant]
     Active Substance: OXYCODONE
     Indication: PRODUCT USED FOR UNKNOWN INDICATION
     Route: 065
     Dates: start: 1994
  5. HYDROXYZINE [Concomitant]
     Active Substance: HYDROXYZINE HYDROCHLORIDE
     Indication: PRODUCT USED FOR UNKNOWN INDICATION
     Route: 065

REACTIONS (9)
  - Gastrointestinal haemorrhage [Unknown]
  - Product use in unapproved indication [Unknown]
  - Contusion [Unknown]
  - Off label use [Unknown]
  - Internal haemorrhage [Unknown]
  - Haematemesis [Unknown]
  - Skin haemorrhage [Unknown]
  - Rectal haemorrhage [Unknown]
  - Epistaxis [Unknown]

NARRATIVE: CASE EVENT DATE: 201508
